FAERS Safety Report 7409843-3 (Version None)
Quarter: 2011Q2

REPORT INFORMATION
  Report Type: 
  Country: None (occurrence: None)
  Receive Date: 20110412
  Receipt Date: 20110401
  Transmission Date: 20111010
  Serious: Yes (Other)
  Sender: FDA-Public Use
  Company Number: DE-ELI_LILLY_AND_COMPANY-DE201104000996

PATIENT
  Age: 57 Year
  Sex: Male
  Weight: 91 kg

DRUGS (3)
  1. ALIMTA [Suspect]
     Indication: LUNG ADENOCARCINOMA METASTATIC
     Dosage: 1036 MG, UNKNOWN
     Route: 042
  2. AVASTIN [Concomitant]
     Dosage: 680 MG, UNKNOWN
     Route: 042
  3. CARBOPLATIN [Concomitant]
     Dosage: 554 MG, UNKNOWN
     Route: 065

REACTIONS (2)
  - BRONCHOSPASM [None]
  - DYSPNOEA [None]
